FAERS Safety Report 11674236 (Version 3)
Quarter: 2015Q4

REPORT INFORMATION
  Report Type: Spontaneous
  Country: GB (occurrence: GB)
  Receive Date: 20151028
  Receipt Date: 20151105
  Transmission Date: 20160304
  Serious: Yes (Hospitalization)
  Sender: FDA-Public Use
  Company Number: GB-WATSON-2015-19594

PATIENT
  Age: 79 Year
  Sex: Female
  Weight: 68 kg

DRUGS (18)
  1. PREDNISOLONE (UNKNOWN) [Suspect]
     Active Substance: PREDNISOLONE
     Indication: DIFFUSE LARGE B-CELL LYMPHOMA
     Dosage: 5 MG, DAILY
     Route: 048
     Dates: start: 20150714, end: 20150714
  2. RITUXIMAB [Concomitant]
     Active Substance: RITUXIMAB
     Indication: DIFFUSE LARGE B-CELL LYMPHOMA
     Dosage: 700 MG, CYCLICAL (ONCE ON DAY 1 OF EVERY 21 DAY CYCLE)
     Route: 042
     Dates: start: 20150217, end: 20150708
  3. CYCLOPHOSPHAMIDE. [Concomitant]
     Active Substance: CYCLOPHOSPHAMIDE
     Indication: DIFFUSE LARGE B-CELL LYMPHOMA
     Dosage: 1300 MG, CYCLICAL (ONCE ON DAY 1 OF EVERY 21 DAY CYCLE)
     Route: 042
     Dates: start: 20150217, end: 20150708
  4. FERROUS FUMARATE [Concomitant]
     Active Substance: FERROUS FUMARATE
     Indication: ANAEMIA
     Dosage: 210 MG, BID
     Route: 048
     Dates: end: 20150716
  5. LISINOPRIL. [Concomitant]
     Active Substance: LISINOPRIL
     Indication: HYPERTENSION
     Dosage: 20 MG, DAILY
     Route: 065
     Dates: start: 20070214, end: 20150716
  6. PREDNISOLONE (UNKNOWN) [Suspect]
     Active Substance: PREDNISOLONE
     Dosage: 100 MG, DAILY
     Route: 048
     Dates: start: 20150708, end: 20150712
  7. SULFAMETHOXAZOLE [Concomitant]
     Active Substance: SULFAMETHOXAZOLE
     Indication: ANTIBIOTIC PROPHYLAXIS
     Dosage: 480 MG, 1/ THREE WEEKS (480 MG ONCE DAILY THREE TIMES WEEKLY)
     Route: 065
     Dates: start: 20150217, end: 20150715
  8. PREDNISOLONE (UNKNOWN) [Suspect]
     Active Substance: PREDNISOLONE
     Dosage: 10 MG, DAILY
     Route: 048
     Dates: start: 20150713, end: 20150713
  9. INSULIN [Concomitant]
     Active Substance: INSULIN NOS
     Indication: DIABETES MELLITUS
     Dosage: 1 DF, DAILY ( DOSE: 18 UNITS)
     Route: 058
     Dates: start: 20110211, end: 20150716
  10. LANSOPRAZOLE. [Concomitant]
     Active Substance: LANSOPRAZOLE
     Indication: PROPHYLAXIS
     Dosage: 30 MG, DAILY
     Route: 065
     Dates: start: 20080530, end: 20150716
  11. METFORMIN [Concomitant]
     Active Substance: METFORMIN HYDROCHLORIDE
     Indication: DIABETES MELLITUS
     Dosage: 500 MG, BID (MODIFIED RELEASE)
     Route: 065
     Dates: start: 20130918, end: 20150715
  12. THYROXINE [Concomitant]
     Active Substance: LEVOTHYROXINE
     Indication: HYPOTHYROIDISM
     Dosage: 100 ?G, DAILY
     Route: 065
     Dates: start: 20070214, end: 20150716
  13. TRIMETHOPRIM. [Concomitant]
     Active Substance: TRIMETHOPRIM
     Indication: ANTIBIOTIC PROPHYLAXIS
     Dosage: 480 MG, 1/ THREE WEEKS (480 MG ONCE DAILY THREE TIMES WEEKLY)
     Route: 065
     Dates: start: 20150217, end: 20150715
  14. VINCRISTINE [Concomitant]
     Active Substance: VINCRISTINE
     Indication: DIFFUSE LARGE B-CELL LYMPHOMA
     Dosage: 1 MG, CYCLICAL (ONCE ON DAY 1 OF EVERY 21 DAY CYCLE)
     Route: 042
     Dates: start: 20150217, end: 20150708
  15. GRANULOCYTE COLONY STIMULATING FACTOR [Concomitant]
     Active Substance: GRANULOCYTE COLONY-STIMULATING FACTOR NOS
     Indication: PROPHYLAXIS
     Dosage: 300 ?G, DAILY
     Route: 058
     Dates: start: 20150220, end: 20150715
  16. INOTUZUMAB OZOGAMICIN [Concomitant]
     Active Substance: INOTUZUMAB OZOGAMICIN
     Indication: DIFFUSE LARGE B-CELL LYMPHOMA
     Dosage: 1.4 MG, CYCLICAL
     Route: 042
     Dates: start: 20150218, end: 20150428
  17. GLICLAZIDE [Concomitant]
     Active Substance: GLICLAZIDE
     Indication: DIABETES MELLITUS
     Dosage: 30 MG, DAILY
     Route: 065
     Dates: start: 20070731, end: 20150716
  18. ACICLOVIR [Concomitant]
     Active Substance: ACYCLOVIR
     Indication: ANTIVIRAL PROPHYLAXIS
     Dosage: 200 MG, TID
     Route: 065
     Dates: start: 20150217, end: 20150716

REACTIONS (3)
  - Insomnia [Not Recovered/Not Resolved]
  - Fatigue [Recovering/Resolving]
  - Confusional state [Recovered/Resolved]

NARRATIVE: CASE EVENT DATE: 20150713
